FAERS Safety Report 18995225 (Version 1)
Quarter: 2021Q1

REPORT INFORMATION
  Report Type: Spontaneous
  Country: BY (occurrence: BY)
  Receive Date: 20210310
  Receipt Date: 20210310
  Transmission Date: 20210420
  Serious: Yes (Hospitalization, Other)
  Sender: FDA-Public Use
  Company Number: BY-SEATTLE GENETICS-2021SGN01322

PATIENT
  Age: 35 Year
  Sex: Female

DRUGS (1)
  1. ADCETRIS [Suspect]
     Active Substance: BRENTUXIMAB VEDOTIN
     Indication: HODGKIN^S DISEASE
     Dosage: 1.8 MILLIGRAM/KILOGRAM, Q3WEEKS
     Route: 042
     Dates: start: 20201223

REACTIONS (4)
  - Pneumonia [Unknown]
  - Rash [Unknown]
  - Interstitial lung disease [Unknown]
  - Viral infection [Unknown]
